FAERS Safety Report 7750593 (Version 28)
Quarter: 2015Q2

REPORT INFORMATION
  Report Type: Report from Study
  Country: CA (occurrence: CA)
  Receive Date: 20110106
  Receipt Date: 20150601
  Transmission Date: 20150821
  Serious: Yes (Hospitalization, Other)
  Sender: FDA-Public Use
  Company Number: PHHY2010CA37641

PATIENT
  Age: 56 Year
  Sex: Female

DRUGS (1)
  1. SANDOSTATIN LAR DEPOT [Suspect]
     Active Substance: OCTREOTIDE ACETATE
     Indication: ACROMEGALY
     Dosage: 30 MG, ONCE A MONTH
     Route: 030
     Dates: start: 20060802

REACTIONS (27)
  - Renal disorder [Recovered/Resolved]
  - Pyrexia [Unknown]
  - Arthralgia [Recovered/Resolved]
  - Blister [Unknown]
  - Seizure [Unknown]
  - Vomiting [Unknown]
  - Oropharyngeal pain [Unknown]
  - Malaise [Unknown]
  - Activities of daily living impaired [Unknown]
  - Insomnia [Unknown]
  - Dyspnoea [Unknown]
  - Pharyngitis [Unknown]
  - Depression [Recovering/Resolving]
  - Pain [Not Recovered/Not Resolved]
  - Hearing impaired [Not Recovered/Not Resolved]
  - Blood pressure increased [Unknown]
  - Abdominal pain [Unknown]
  - Pain in extremity [Recovered/Resolved]
  - Anaemia [Unknown]
  - Thermal burn [Unknown]
  - Loss of consciousness [Recovering/Resolving]
  - Memory impairment [Unknown]
  - Influenza [Not Recovered/Not Resolved]
  - Chills [Unknown]
  - Bone pain [Unknown]
  - Plantar fasciitis [Unknown]
  - Dizziness [Recovered/Resolved]

NARRATIVE: CASE EVENT DATE: 20130912
